FAERS Safety Report 8557608-1 (Version None)
Quarter: 2012Q3

REPORT INFORMATION
  Report Type: 
  Country: None (occurrence: None)
  Receive Date: 20120801
  Receipt Date: 20120720
  Transmission Date: 20120928
  Serious: Yes (Death, Hospitalization)
  Sender: FDA-Public Use
  Company Number: GB-CELGENEUS-167-C5013-10102615

PATIENT
  Sex: Male
  Weight: 86 kg

DRUGS (14)
  1. PREDNISONE [Suspect]
     Indication: PROSTATE CANCER
     Dosage: 10 MILLIGRAM
     Route: 065
     Dates: start: 20100917
  2. FRUSEMIDE [Concomitant]
     Indication: DIURETIC THERAPY
     Dosage: 40 MILLIGRAM
     Route: 048
     Dates: start: 20060101
  3. CLARITHROMYCIN [Concomitant]
     Dosage: 1000 MILLIGRAM
     Route: 048
     Dates: start: 20101025, end: 20101105
  4. OMEPRAZOLE [Concomitant]
     Indication: PROPHYLAXIS
     Dosage: 20 MILLIGRAM
     Route: 048
     Dates: start: 19930101
  5. LENALIDOMIDE [Suspect]
     Dosage: 25 MILLIGRAM
     Route: 048
     Dates: start: 20101008, end: 20101021
  6. DOCETAXEL [Suspect]
     Indication: PROSTATE CANCER
     Dosage: 144 MILLIGRAM
     Route: 065
     Dates: start: 20100917
  7. ACETAMINOPHEN AND CODEINE PHOSPHATE [Concomitant]
     Indication: PAIN
     Dosage: 30/500MG
     Route: 048
     Dates: start: 20100101
  8. DOCETAXEL [Suspect]
     Dosage: 144 MILLIGRAM
     Route: 065
     Dates: start: 20101008, end: 20101008
  9. PREDNISONE [Suspect]
     Dosage: 10 MILLIGRAM
     Route: 065
     Dates: start: 20101008, end: 20101008
  10. DEXAMETHASONE [Concomitant]
     Indication: PREMEDICATION
     Route: 065
     Dates: start: 20101008, end: 20101008
  11. CLARITHROMYCIN [Concomitant]
     Dosage: 500 MILLIGRAM
     Route: 048
     Dates: start: 20101023, end: 20101025
  12. LENALIDOMIDE [Suspect]
     Indication: PROSTATE CANCER
     Dosage: 25 MILLIGRAM
     Route: 048
     Dates: start: 20100917
  13. ENOXAPARIN [Concomitant]
     Indication: THROMBOSIS
     Dosage: 120 MILLIGRAM
     Route: 058
     Dates: start: 20101025, end: 20101026
  14. ONDANSETRON [Concomitant]
     Indication: PREMEDICATION
     Route: 065
     Dates: start: 20101008, end: 20101008

REACTIONS (1)
  - ALVEOLITIS [None]
